FAERS Safety Report 13124146 (Version 1)
Quarter: 2017Q1

REPORT INFORMATION
  Report Type: Spontaneous
  Country: US (occurrence: US)
  Receive Date: 20170118
  Receipt Date: 20170118
  Transmission Date: 20170428
  Serious: Yes (Hospitalization, Other)
  Sender: FDA-Public Use
  Company Number: US-ZYDUS-013268

PATIENT
  Age: 43 Year
  Sex: Male

DRUGS (6)
  1. BALSALAZIDE/BALSALAZIDE SODIUM [Concomitant]
     Indication: COLITIS ULCERATIVE
     Route: 048
  2. PREDNISONE. [Suspect]
     Active Substance: PREDNISONE
     Indication: COLITIS ULCERATIVE
     Route: 065
  3. METHYLPREDNISOLONE. [Suspect]
     Active Substance: METHYLPREDNISOLONE
     Indication: COLITIS ULCERATIVE
     Route: 042
  4. AZATHIOPRINE. [Suspect]
     Active Substance: AZATHIOPRINE
     Indication: COLITIS ULCERATIVE
     Route: 065
  5. PREDNISONE. [Suspect]
     Active Substance: PREDNISONE
     Indication: COLITIS ULCERATIVE
     Route: 065
  6. METRONIDAZOLE. [Concomitant]
     Active Substance: METRONIDAZOLE
     Indication: COLITIS ULCERATIVE
     Route: 065

REACTIONS (18)
  - Infection reactivation [Recovered/Resolved]
  - Herpes simplex colitis [Recovered/Resolved]
  - Abdominal discomfort [Recovered/Resolved]
  - Colitis [Recovered/Resolved]
  - Haematochezia [Recovered/Resolved]
  - Alanine aminotransferase increased [Recovered/Resolved]
  - Mouth ulceration [Recovered/Resolved]
  - Drug intolerance [Unknown]
  - Hypophagia [Recovered/Resolved]
  - Diarrhoea [Recovered/Resolved]
  - Abdominal tenderness [Recovered/Resolved]
  - Pancytopenia [Recovered/Resolved]
  - Hepatic necrosis [Recovered/Resolved]
  - Fatigue [Recovered/Resolved]
  - Aspartate aminotransferase increased [Recovered/Resolved]
  - Distributive shock [Recovered/Resolved]
  - Herpes simplex hepatitis [Recovered/Resolved]
  - Pyrexia [Recovered/Resolved]
